FAERS Safety Report 13897448 (Version 1)
Quarter: 2017Q3

REPORT INFORMATION
  Report Type: Spontaneous
  Country: US (occurrence: US)
  Receive Date: 20170823
  Receipt Date: 20170823
  Transmission Date: 20171127
  Serious: No
  Sender: FDA-Public Use
  Company Number: US-SA-2016SA154311

PATIENT
  Age: 78 Year
  Sex: Male
  Weight: 38.5 kg

DRUGS (10)
  1. MULTAQ [Suspect]
     Active Substance: DRONEDARONE
     Indication: ATRIAL FIBRILLATION
     Dosage: DOSE=3/4 TAB,2 TAB PER DAY
     Route: 065
     Dates: start: 201603, end: 201604
  2. ROBAXIN [Concomitant]
     Active Substance: METHOCARBAMOL
     Indication: MUSCLE SPASMS
     Dates: start: 2008, end: 201606
  3. LEVOTHYROXINE. [Concomitant]
     Active Substance: LEVOTHYROXINE
     Dates: start: 2000
  4. FOSAMAX [Concomitant]
     Active Substance: ALENDRONATE SODIUM
     Indication: OSTEOPOROSIS
     Dates: start: 2008, end: 2016
  5. METOPROLOL. [Concomitant]
     Active Substance: METOPROLOL
     Indication: HEART RATE IRREGULAR
     Dates: start: 201506, end: 201603
  6. ROBAXIN [Concomitant]
     Active Substance: METHOCARBAMOL
     Indication: BACK PAIN
     Dates: start: 2008, end: 201606
  7. MULTAQ [Suspect]
     Active Substance: DRONEDARONE
     Indication: ATRIAL FIBRILLATION
     Route: 065
     Dates: start: 2015, end: 201603
  8. MULTAQ [Suspect]
     Active Substance: DRONEDARONE
     Indication: ATRIAL FIBRILLATION
     Dosage: DOSE-2.5 TAB;2 TAB PER DAY
     Route: 065
     Dates: start: 201607, end: 201608
  9. MULTAQ [Suspect]
     Active Substance: DRONEDARONE
     Indication: ATRIAL FIBRILLATION
     Route: 065
     Dates: start: 201608
  10. MULTAQ [Suspect]
     Active Substance: DRONEDARONE
     Indication: ATRIAL FIBRILLATION
     Dosage: DOSE= 2 TAB PER DAY
     Route: 065
     Dates: start: 201604, end: 201607

REACTIONS (9)
  - Somnolence [Unknown]
  - Hepatic steatosis [Not Recovered/Not Resolved]
  - Heart rate increased [Not Recovered/Not Resolved]
  - Osteoporosis [Not Recovered/Not Resolved]
  - Asthma [Not Recovered/Not Resolved]
  - Off label use [Unknown]
  - Mental disorder [Not Recovered/Not Resolved]
  - Decreased appetite [Not Recovered/Not Resolved]
  - Bone density decreased [Not Recovered/Not Resolved]
